FAERS Safety Report 9721610 (Version 1)
Quarter: 2013Q4

REPORT INFORMATION
  Report Type: Spontaneous
  Country: US (occurrence: US)
  Receive Date: 20131201
  Receipt Date: 20131201
  Transmission Date: 20140711
  Serious: No
  Sender: FDA-Public Use
  Company Number: US-ABBVIE-13P-163-1143675-00

PATIENT
  Age: 56 Year
  Sex: Male
  Weight: 105.33 kg

DRUGS (12)
  1. ANDROGEL [Suspect]
     Indication: BLOOD TESTOSTERONE DECREASED
     Dosage: 2.5 GRAM PACKET
     Route: 061
     Dates: end: 20130826
  2. ANDROGEL [Suspect]
     Route: 061
     Dates: start: 20130826
  3. ANDROGEL [Suspect]
     Indication: BLOOD TESTOSTERONE DECREASED
     Route: 061
     Dates: start: 1995
  4. VENLAFAXINE [Concomitant]
     Indication: PRODUCT USED FOR UNKNOWN INDICATION
  5. TOPAMAX [Concomitant]
     Indication: MIGRAINE PROPHYLAXIS
  6. LIPITOR [Concomitant]
     Indication: BLOOD CHOLESTEROL INCREASED
  7. PROPRANOLOL [Concomitant]
     Indication: PRODUCT USED FOR UNKNOWN INDICATION
  8. VITAMIN D [Concomitant]
     Indication: PRODUCT USED FOR UNKNOWN INDICATION
  9. SAW PALMETO [Concomitant]
     Indication: PRODUCT USED FOR UNKNOWN INDICATION
  10. KRILL OMEGA RED OIL [Concomitant]
     Indication: PRODUCT USED FOR UNKNOWN INDICATION
  11. MILK THISTLE [Concomitant]
     Indication: PRODUCT USED FOR UNKNOWN INDICATION
  12. RED YEAST RICE [Concomitant]
     Indication: BLOOD CHOLESTEROL

REACTIONS (3)
  - Product quality issue [Unknown]
  - Blood testosterone decreased [Not Recovered/Not Resolved]
  - Drug ineffective [Not Recovered/Not Resolved]
